FAERS Safety Report 8158879 (Version 3)
Quarter: 2012Q4

REPORT INFORMATION
  Report Type: 
  Country: JP (occurrence: JP)
  Receive Date: 20110927
  Receipt Date: 20121111
  Transmission Date: 20130627
  Serious: Yes (Other)
  Sender: FDA-Public Use
  Company Number: PHHY2011JP84136

PATIENT
  Age: 74 Year
  Sex: Male

DRUGS (1)
  1. ZOLEDRONIC ACID [Suspect]
     Indication: METASTASES TO BONE
     Dosage: UNK UKN, UNK
     Route: 042
     Dates: start: 200801, end: 201003

REACTIONS (5)
  - Osteonecrosis of jaw [Unknown]
  - Osteosclerosis [Unknown]
  - Periodontitis [Unknown]
  - Osteomyelitis [Unknown]
  - Infection [Unknown]
